FAERS Safety Report 14976759 (Version 1)
Quarter: 2018Q2

REPORT INFORMATION
  Report Type: Spontaneous
  Country: US (occurrence: US)
  Receive Date: 20180605
  Receipt Date: 20180605
  Transmission Date: 20180711
  Serious: No
  Sender: FDA-Public Use
  Company Number: US-GLAXOSMITHKLINE-US2018098323

PATIENT
  Age: 80 Year
  Sex: Female

DRUGS (9)
  1. FUROSEMIDE. [Concomitant]
     Active Substance: FUROSEMIDE
  2. PAROXETINE. [Concomitant]
     Active Substance: PAROXETINE
  3. CARVEDILOL. [Concomitant]
     Active Substance: CARVEDILOL
  4. FENTANYL. [Concomitant]
     Active Substance: FENTANYL
  5. LACTULOSE. [Concomitant]
     Active Substance: LACTULOSE
  6. LISINOPRIL. [Concomitant]
     Active Substance: LISINOPRIL
  7. OXYCODONE [Concomitant]
     Active Substance: OXYCODONE
  8. ANORO ELLIPTA [Suspect]
     Active Substance: UMECLIDINIUM BROMIDE\VILANTEROL TRIFENATATE
     Indication: CHRONIC OBSTRUCTIVE PULMONARY DISEASE
     Dosage: 1 PUFF(S), QD
     Route: 055
     Dates: start: 20180521
  9. ATORVASTATIN [Concomitant]
     Active Substance: ATORVASTATIN

REACTIONS (2)
  - Drug effect incomplete [Unknown]
  - Dyspnoea [Not Recovered/Not Resolved]

NARRATIVE: CASE EVENT DATE: 20180526
